FAERS Safety Report 19389679 (Version 1)
Quarter: 2021Q2

REPORT INFORMATION
  Report Type: Spontaneous
  Country: US (occurrence: US)
  Receive Date: 20210607
  Receipt Date: 20210607
  Transmission Date: 20210717
  Serious: Yes (Hospitalization, Other)
  Sender: FDA-Public Use
  Company Number: None

PATIENT
  Age: 68 Year
  Sex: Male
  Weight: 83.9 kg

DRUGS (6)
  1. NIVOLUMAB [Suspect]
     Active Substance: NIVOLUMAB
     Indication: LEUKOPLAKIA ORAL
     Dosage: ?          OTHER FREQUENCY:Q28 DAYS, 4X;?
     Route: 042
  2. METHYLPHENIDATE HCL (RITALIN) 5 MG TABLET (BID AS NEEDED) [Concomitant]
     Dates: start: 20210301, end: 20210322
  3. ATOVAQUONE (MEPON) 750MG/5ML SUSPENSION (10ML/1,500MG TOTAL DAILY) [Concomitant]
     Dates: start: 20210521
  4. LEVOTHYROXINE (SYNTHROID, LEVOTHROID) 175 MCG TABLET (DAILY) [Concomitant]
     Dates: start: 20210324
  5. CALCIUM CARBONATE/VITAMIN D3 (CALCIUM 500 WITH D ORAL)(BID) [Concomitant]
     Dates: start: 20210301
  6. LEVOTHYROXINE (SYNTHROID, LEVOTHROID) 150 MCG TABLET (DAILY) [Concomitant]
     Dates: start: 20210301, end: 20210324

REACTIONS (9)
  - Insomnia [None]
  - Palpitations [None]
  - Immune-mediated hepatitis [None]
  - Hepatitis acute [None]
  - Aspartate aminotransferase increased [None]
  - Fatigue [None]
  - Liver function test increased [None]
  - Alanine aminotransferase increased [None]
  - Therapy interrupted [None]

NARRATIVE: CASE EVENT DATE: 20210606
